FAERS Safety Report 8574073-9 (Version None)
Quarter: 2012Q3

REPORT INFORMATION
  Report Type: 
  Country: None (occurrence: None)
  Receive Date: 20120806
  Receipt Date: 20120731
  Transmission Date: 20120928
  Serious: Yes (Death, Other)
  Sender: FDA-Public Use
  Company Number: PHHO2006JP17800

PATIENT
  Sex: Male

DRUGS (5)
  1. ADRIAMYCIN PFS [Concomitant]
     Indication: MALIGNANT FIBROUS HISTIOCYTOMA
     Dosage: 40 MG, UNK
     Route: 042
     Dates: start: 20060428, end: 20060512
  2. ZOLEDRONOC ACID [Suspect]
     Indication: HYPERCALCAEMIA OF MALIGNANCY
     Dosage: UNK UKN, UNK
     Route: 042
     Dates: start: 20060428, end: 20060428
  3. MESNA [Concomitant]
     Indication: MALIGNANT FIBROUS HISTIOCYTOMA
     Dosage: 800 MG, UNK
     Route: 042
     Dates: start: 20060428, end: 20060512
  4. ZOFRAN [Concomitant]
     Indication: MALIGNANT FIBROUS HISTIOCYTOMA
     Dosage: 4 MG, UNK
     Route: 042
     Dates: start: 20060428, end: 20060512
  5. IFOSFAMIDE [Concomitant]
     Indication: MALIGNANT FIBROUS HISTIOCYTOMA
     Dosage: 2.5 G, UNK
     Route: 042
     Dates: start: 20060428, end: 20060512

REACTIONS (3)
  - NEOPLASM MALIGNANT [None]
  - NEOPLASM PROGRESSION [None]
  - BLOOD UREA INCREASED [None]
